FAERS Safety Report 7371962-8 (Version None)
Quarter: 2011Q1

REPORT INFORMATION
  Report Type: 
  Country: None (occurrence: None)
  Receive Date: 20110324
  Receipt Date: 20110317
  Transmission Date: 20110831
  Serious: Yes (Death)
  Sender: FDA-Public Use
  Company Number: US-ROCHE-766696

PATIENT
  Age: 37 Year
  Sex: Female

DRUGS (10)
  1. ZOLPIDEM [Suspect]
     Route: 048
  2. ZIPRASIDONE [Suspect]
     Route: 048
  3. GABAPENTIN [Suspect]
     Route: 048
  4. DIPHENHYDRAMINE [Suspect]
     Route: 048
  5. OXYCODONE [Suspect]
     Route: 048
  6. ALPRAZOLAM [Suspect]
     Route: 048
  7. PARACETAMOL [Suspect]
     Dosage: DRUG: ACETAMINOPHEN.
     Route: 048
  8. AMLODIPINE [Suspect]
     Route: 048
  9. NAPROXEN [Suspect]
     Route: 048
  10. ETHANOL [Suspect]
     Route: 048

REACTIONS (1)
  - TOXICITY TO VARIOUS AGENTS [None]
